FAERS Safety Report 6519080-2 (Version None)
Quarter: 2009Q4

REPORT INFORMATION
  Report Type: 
  Country: None (occurrence: None)
  Receive Date: 20091228
  Receipt Date: 20091216
  Transmission Date: 20100525
  Serious: Yes (Death, Hospitalization)
  Sender: FDA-Public Use
  Company Number: DE-ROCHE-664084

PATIENT
  Sex: Male
  Weight: 135 kg

DRUGS (4)
  1. BEVACIZUMAB [Suspect]
     Route: 042
     Dates: start: 20080303, end: 20080811
  2. IRINOTECAN HCL [Concomitant]
     Route: 042
     Dates: start: 20090303, end: 20090811
  3. FLUOROURACIL [Concomitant]
     Route: 042
     Dates: start: 20090303, end: 20090811
  4. CALCIUMFOLINAT [Concomitant]
     Route: 042
     Dates: start: 20090303, end: 20090811

REACTIONS (2)
  - LARGE INTESTINE PERFORATION [None]
  - SEPTIC SHOCK [None]
